FAERS Safety Report 8041359-6 (Version None)
Quarter: 2012Q1

REPORT INFORMATION
  Report Type: 
  Country: None (occurrence: None)
  Receive Date: 20120112
  Receipt Date: 20120106
  Transmission Date: 20120608
  Serious: No
  Sender: FDA-Public Use
  Company Number: US-PFIZER INC-2012005992

PATIENT

DRUGS (11)
  1. PENICILLIN NOS [Suspect]
     Dosage: UNK
  2. DOXYCYCLINE [Suspect]
     Dosage: UNK
  3. ARTHROTEC [Suspect]
     Dosage: UNK
  4. LYRICA [Suspect]
     Dosage: UNK
  5. CODEINE SULFATE [Suspect]
     Dosage: UNK
  6. AMITRIPTYLINE HCL [Suspect]
     Dosage: UNK
  7. MORPHINE SULFATE [Suspect]
     Dosage: UNK
  8. PREDNISONE [Suspect]
     Dosage: UNK
  9. ROXICODONE [Suspect]
     Dosage: UNK
  10. TEQUIN [Suspect]
     Dosage: UNK
  11. SULFAMETHOXAZOLE [Suspect]
     Dosage: UNK

REACTIONS (1)
  - DRUG HYPERSENSITIVITY [None]
